FAERS Safety Report 9154331 (Version 1)
Quarter: 2013Q1

REPORT INFORMATION
  Report Type: Spontaneous
  Country: US (occurrence: None)
  Receive Date: 20130211
  Receipt Date: 20130211
  Transmission Date: 20140127
  Serious: Yes (Other)
  Sender: FDA-Public Use
  Company Number: DKLU1086252

PATIENT
  Age: 12 Year
  Sex: Female

DRUGS (1)
  1. SABRIL [Suspect]
     Indication: PRODUCT USED FOR UNKNOWN INDICATION
     Dosage: ONGOING
     Route: 048

REACTIONS (2)
  - Visual impairment [None]
  - Optic atrophy [None]
